FAERS Safety Report 5044345-3 (Version None)
Quarter: 2006Q2

REPORT INFORMATION
  Report Type: 
  Country: None (occurrence: None)
  Receive Date: 20060629
  Receipt Date: 20060613
  Transmission Date: 20061013
  Serious: Yes (Life-Threatening, Hospitalization)
  Sender: FDA-Public Use
  Company Number: VNL_0156_2006

PATIENT
  Sex: Male

DRUGS (15)
  1. APO-GO [Suspect]
     Indication: PARKINSON'S DISEASE
     Dosage: 100 MG/12  HRS INFUSION SC
     Route: 058
  2. APO-GO [Suspect]
     Indication: PARKINSON'S DISEASE
  3. APO-GO [Suspect]
     Indication: PARKINSON'S DISEASE
     Dosage: 40 MG/12HRS INFUSION SC
     Route: 058
  4. APO-GO [Suspect]
     Indication: PARKINSON'S DISEASE
     Dosage: 80 MG/12HRS INFUSION SC
     Route: 058
  5. ALLOPURINOL [Concomitant]
  6. SINEMET CR [Concomitant]
  7. SINEMET [Concomitant]
  8. ATENOLOL [Concomitant]
  9. DIHYDROCODEINE [Concomitant]
  10. METHOCARBINOL [Concomitant]
  11. QUININE SULFATE [Concomitant]
  12. LOPERAMIDE [Concomitant]
  13. RANITIDINE [Concomitant]
  14. PRAMIPEXOLE [Concomitant]
  15. DOMPERIDONE [Concomitant]

REACTIONS (3)
  - LOSS OF CONSCIOUSNESS [None]
  - RESPIRATORY ARREST [None]
  - RESPIRATORY FAILURE [None]
